FAERS Safety Report 18924361 (Version 2)
Quarter: 2021Q1

REPORT INFORMATION
  Report Type: Spontaneous
  Country: US (occurrence: US)
  Receive Date: 20210223
  Receipt Date: 20210302
  Transmission Date: 20210420
  Serious: Yes (Life-Threatening, Other)
  Sender: FDA-Public Use
  Company Number: US-AUROBINDO-AUR-APL-2021-006621

PATIENT
  Age: 6 Year
  Sex: Female

DRUGS (5)
  1. POSACONAZOLE [Suspect]
     Active Substance: POSACONAZOLE
     Indication: MENINGITIS COCCIDIOIDES
     Dosage: UNK
     Route: 048
  2. AMPHOTERICIN B DEOXYCHOLATE [Suspect]
     Active Substance: AMPHOTERICIN B
     Dosage: 0.3 MILLIGRAM 3 TIMES PER WEEK
     Route: 037
  3. VORICONAZOLE. [Suspect]
     Active Substance: VORICONAZOLE
     Indication: MENINGITIS COCCIDIOIDES
     Dosage: 160 MILLIGRAM, TWO TIMES A DAY
     Route: 048
  4. AMPHOTERICIN B DEOXYCHOLATE [Suspect]
     Active Substance: AMPHOTERICIN B
     Indication: MENINGITIS COCCIDIOIDES
     Dosage: 0.05 MILLIGRAM WITH A SUBSEQUENT INCREASE IN DOSE TO 0.05 MG/WEEK
     Route: 037
  5. FLUCONAZOLE. [Suspect]
     Active Substance: FLUCONAZOLE
     Indication: MENINGITIS COCCIDIOIDES
     Dosage: 200 MILLIGRAM
     Route: 048
     Dates: start: 20131213, end: 201501

REACTIONS (2)
  - Treatment failure [Recovered/Resolved]
  - Infection [Recovered/Resolved]

NARRATIVE: CASE EVENT DATE: 2015
